FAERS Safety Report 17719461 (Version 1)
Quarter: 2020Q2

REPORT INFORMATION
  Report Type: Spontaneous
  Country: SE (occurrence: SE)
  Receive Date: 20200428
  Receipt Date: 20200428
  Transmission Date: 20200714
  Serious: Yes (Other)
  Sender: FDA-Public Use
  Company Number: NVSC2020SE113735

PATIENT
  Age: 59 Year
  Sex: Female
  Weight: 65 kg

DRUGS (6)
  1. PREDNISOLONE. [Concomitant]
     Active Substance: PREDNISOLONE
     Indication: PRODUCT USED FOR UNKNOWN INDICATION
     Dosage: 5 MG
     Route: 065
  2. PLAQUENIL [Suspect]
     Active Substance: HYDROXYCHLOROQUINE SULFATE
     Indication: MIXED CONNECTIVE TISSUE DISEASE
     Route: 065
  3. METHOTREXATE. [Suspect]
     Active Substance: METHOTREXATE
     Dosage: 7 TABLETTER
     Route: 065
     Dates: start: 201906, end: 201910
  4. METHOTREXATE. [Suspect]
     Active Substance: METHOTREXATE
     Indication: MIXED CONNECTIVE TISSUE DISEASE
     Dosage: ^NOV 2016 H?JDES MTX TILL 8 TAB/V^.
     Route: 065
     Dates: start: 201611
  5. METHOTREXATE. [Suspect]
     Active Substance: METHOTREXATE
     Dosage: 6 TABLETTER
     Route: 065
     Dates: start: 201703
  6. METHOTREXATE. [Suspect]
     Active Substance: METHOTREXATE
     Dosage: ^6 TAB. METHOTREXAT/V +5 MG PREDNISOLON UNDER M?NGA ?R^.
     Route: 065

REACTIONS (5)
  - Dizziness [Recovered/Resolved]
  - Deafness neurosensory [Recovered/Resolved]
  - Tinnitus [Recovered/Resolved]
  - Nausea [Recovered/Resolved]
  - Ear discomfort [Recovered/Resolved]

NARRATIVE: CASE EVENT DATE: 2019
